FAERS Safety Report 5463415-9 (Version None)
Quarter: 2007Q3

REPORT INFORMATION
  Report Type: 
  Country: None (occurrence: None)
  Receive Date: 20070920
  Receipt Date: 20070910
  Transmission Date: 20080115
  Serious: No
  Sender: FDA-Public Use
  Company Number: US-BAXTER-2007BH007629

PATIENT
  Age: 26 Year
  Sex: Male

DRUGS (2)
  1. NAFCILLIN INJECTION IN PLASTIC CONTAINER [Suspect]
     Indication: ENDOCARDITIS STAPHYLOCOCCAL
     Dosage: DOSE UNIT:UNKNOWN
     Route: 065
  2. VANCOMYCIN [Concomitant]
     Indication: ENDOCARDITIS STAPHYLOCOCCAL
     Dosage: DOSE UNIT:UNKNOWN
     Route: 065

REACTIONS (1)
  - NEPHRITIS INTERSTITIAL [None]
